FAERS Safety Report 7533695-4 (Version None)
Quarter: 2011Q2

REPORT INFORMATION
  Report Type: 
  Country: None (occurrence: None)
  Receive Date: 20110608
  Receipt Date: 20110531
  Transmission Date: 20111010
  Serious: Yes (Other)
  Sender: FDA-Public Use
  Company Number: ES-AMGEN-ESPSP2011028115

PATIENT
  Age: 80 Year
  Sex: Female

DRUGS (3)
  1. CINACALCET HYDROCHLORIDE [Suspect]
     Dosage: 30 A?G, UNK
  2. CINACALCET HYDROCHLORIDE [Suspect]
     Dosage: 90 A?G, UNK
  3. CINACALCET HYDROCHLORIDE [Suspect]
     Dosage: 60 A?G, UNK

REACTIONS (7)
  - GASTROINTESTINAL DISORDER [None]
  - HYPERCALCAEMIA [None]
  - GAIT DISTURBANCE [None]
  - BLOOD CREATININE INCREASED [None]
  - ASTHENIA [None]
  - HYPOCALCAEMIA [None]
  - HEADACHE [None]
